FAERS Safety Report 21241873 (Version 1)
Quarter: 2022Q3

REPORT INFORMATION
  Report Type: Spontaneous
  Country: US (occurrence: US)
  Receive Date: 20220823
  Receipt Date: 20220823
  Transmission Date: 20221027
  Serious: No
  Sender: FDA-Public Use
  Company Number: US-BAUSCH-BL-2022-020577

PATIENT
  Age: 76 Year
  Sex: Male
  Weight: 72.640 kg

DRUGS (2)
  1. BRIMONIDINE TARTRATE [Suspect]
     Active Substance: BRIMONIDINE TARTRATE
     Indication: Product used for unknown indication
     Route: 047
  2. CARBAMAZEPINE [Concomitant]
     Active Substance: CARBAMAZEPINE
     Indication: Product used for unknown indication
     Route: 065

REACTIONS (5)
  - Instillation site discomfort [Unknown]
  - Instillation site inflammation [Unknown]
  - Instillation site irritation [Unknown]
  - Instillation site erythema [Unknown]
  - Instillation site pain [Unknown]
